FAERS Safety Report 19924765 (Version 1)
Quarter: 2021Q4

REPORT INFORMATION
  Report Type: Spontaneous
  Country: US (occurrence: US)
  Receive Date: 20211006
  Receipt Date: 20211006
  Transmission Date: 20220303
  Serious: No
  Sender: FDA-Public Use
  Company Number: US-PFIZER INC-202101139600

PATIENT
  Age: 64 Year
  Sex: Female

DRUGS (3)
  1. XELJANZ [Suspect]
     Active Substance: TOFACITINIB CITRATE
     Indication: Rheumatoid arthritis
     Dosage: 5 MG, 2X/DAY
     Route: 048
     Dates: start: 20210827
  2. XELJANZ [Suspect]
     Active Substance: TOFACITINIB CITRATE
     Indication: Depression
  3. XELJANZ [Suspect]
     Active Substance: TOFACITINIB CITRATE
     Indication: Anxiety

REACTIONS (2)
  - Attention deficit hyperactivity disorder [Unknown]
  - Diarrhoea [Unknown]

NARRATIVE: CASE EVENT DATE: 20210101
